FAERS Safety Report 7995449-4 (Version None)
Quarter: 2011Q4

REPORT INFORMATION
  Report Type: 
  Country: None (occurrence: None)
  Receive Date: 20111220
  Receipt Date: 20111212
  Transmission Date: 20120403
  Serious: Yes (Hospitalization, Other)
  Sender: FDA-Public Use
  Company Number: US-BAYER-200944079NA

PATIENT
  Age: 20 Year
  Sex: Female
  Weight: 123 kg

DRUGS (13)
  1. YASMIN [Suspect]
     Indication: CONTRACEPTION
     Dosage: UNK
     Route: 048
     Dates: start: 20050322, end: 20060525
  2. YASMIN [Suspect]
     Dosage: UNK
     Route: 048
     Dates: start: 20070311, end: 20071204
  3. OXYCODONE HCL AND ACETAMINOPHEN [Concomitant]
     Dosage: 5 MG/325 MG 1-2 TABS EVERY 4 HOURS PRN
     Route: 048
  4. TRINESSA-28 [Concomitant]
     Dosage: UNK
     Dates: start: 20040917, end: 20041016
  5. ERRIN [Concomitant]
     Dosage: UNK
     Dates: start: 20041114
  6. HYDROCODONE BITARTRATE AND ACETAMINOPHEN [Concomitant]
     Route: 048
  7. TRINESSA-28 [Concomitant]
     Dosage: UNK
     Dates: start: 20041124, end: 20041220
  8. TERBINAFINE HCL [Concomitant]
     Dosage: 1TAB DAILY X 6 WEEKS
     Route: 048
  9. OXYCET [Concomitant]
  10. PERCOCET [Concomitant]
  11. ERRIN [Concomitant]
     Dosage: UNK
     Dates: start: 20040731, end: 20040824
  12. ERRIN [Concomitant]
     Dosage: UNK
     Dates: start: 20040914, end: 20041008
  13. YAZ [Suspect]
     Route: 048

REACTIONS (8)
  - CHOLECYSTITIS CHRONIC [None]
  - FOETAL DISORDER [None]
  - ABDOMINAL PAIN [None]
  - ABDOMINAL PAIN UPPER [None]
  - ABDOMINAL TENDERNESS [None]
  - CHOLELITHIASIS [None]
  - NAUSEA [None]
  - PREGNANCY [None]
